FAERS Safety Report 24194855 (Version 1)
Quarter: 2024Q3

REPORT INFORMATION
  Report Type: Spontaneous
  Country: US (occurrence: None)
  Receive Date: 20240809
  Receipt Date: 20240809
  Transmission Date: 20241017
  Serious: Yes (Other)
  Sender: Public
  Company Number: None

PATIENT
  Age: 23 Year
  Sex: Female
  Weight: 60.75 kg

DRUGS (2)
  1. MONISTAT 1 COMBINATION PACK [Suspect]
     Active Substance: MICONAZOLE NITRATE
     Indication: Vulvovaginal mycotic infection
     Dates: start: 20240808, end: 20240809
  2. IUD NOS [Concomitant]
     Active Substance: COPPER OR LEVONORGESTREL

REACTIONS (2)
  - Vulvovaginal mycotic infection [None]
  - Vulvovaginal burning sensation [None]

NARRATIVE: CASE EVENT DATE: 20240809
